FAERS Safety Report 7079350-9 (Version None)
Quarter: 2010Q4

REPORT INFORMATION
  Report Type: 
  Country: None (occurrence: None)
  Receive Date: 20101102
  Receipt Date: 20101027
  Transmission Date: 20110411
  Serious: Yes (Other)
  Sender: FDA-Public Use
  Company Number: US-BAYER-201038881NA

PATIENT
  Age: 65 Year
  Sex: Female

DRUGS (7)
  1. AVELOX [Suspect]
     Indication: SINUSITIS
     Dosage: UNIT DOSE: 400 MG
     Route: 048
     Dates: start: 20101016
  2. ISENTRESS [Concomitant]
  3. RESCRIPTOR [Concomitant]
  4. FLECAINIDE ACETATE [Concomitant]
  5. METOPROLOL [Concomitant]
  6. FUROSEMIDE [Concomitant]
  7. CLONIDINE [Concomitant]

REACTIONS (7)
  - DISORIENTATION [None]
  - DIZZINESS [None]
  - DIZZINESS POSTURAL [None]
  - FEELING COLD [None]
  - NERVOUSNESS [None]
  - PERIPHERAL COLDNESS [None]
  - VISION BLURRED [None]
